FAERS Safety Report 9526430 (Version 1)
Quarter: 2013Q3

REPORT INFORMATION
  Report Type: Spontaneous
  Country: GB (occurrence: GB)
  Receive Date: 20130916
  Receipt Date: 20130916
  Transmission Date: 20140515
  Serious: Yes (Other)
  Sender: FDA-Public Use
  Company Number: GB-WATSON-2013-15910

PATIENT
  Age: 61 Year
  Sex: Female
  Weight: 76 kg

DRUGS (3)
  1. ALENDRONIC ACID (UNKNOWN) [Suspect]
     Indication: OSTEOPOROSIS
     Dosage: 1 SACHET WEEKLY
     Route: 048
  2. ADCAL                              /00056901/ [Concomitant]
     Indication: PRODUCT USED FOR UNKNOWN INDICATION
     Dosage: UNK
     Route: 065
  3. CO-CODAMOL [Concomitant]
     Indication: PRODUCT USED FOR UNKNOWN INDICATION
     Dosage: UNK
     Route: 065

REACTIONS (4)
  - Sensory disturbance [Recovered/Resolved]
  - Vertigo [Recovered/Resolved]
  - Feeling drunk [Unknown]
  - Gait disturbance [Unknown]
